FAERS Safety Report 20616172 (Version 1)
Quarter: 2022Q1

REPORT INFORMATION
  Report Type: Spontaneous
  Country: US (occurrence: None)
  Receive Date: 20220318
  Receipt Date: 20220318
  Transmission Date: 20220423
  Serious: Yes (Death)
  Sender: FDA-Public Use
  Company Number: None

PATIENT
  Age: 79 Year
  Sex: Female

DRUGS (1)
  1. VELTASSA [Suspect]
     Active Substance: PATIROMER
     Indication: Hyperkalaemia
     Dosage: 8.4 THRICE WEEKLY ORAL?
     Route: 048
     Dates: start: 20210621, end: 20220314

REACTIONS (1)
  - Death [None]

NARRATIVE: CASE EVENT DATE: 20220314
